FAERS Safety Report 9394835 (Version 1)
Quarter: 2013Q3

REPORT INFORMATION
  Report Type: Spontaneous
  Country: US (occurrence: US)
  Receive Date: 20130711
  Receipt Date: 20130711
  Transmission Date: 20140515
  Serious: Yes (Hospitalization)
  Sender: FDA-Public Use
  Company Number: US-JNJFOC-20130701001

PATIENT
  Sex: Female

DRUGS (6)
  1. TOPAMAX [Suspect]
     Indication: CONVULSION
     Route: 048
     Dates: end: 201302
  2. KEPPRA [Suspect]
     Indication: CONVULSION
     Route: 065
  3. KLONOPIN [Suspect]
     Indication: CONVULSION
     Route: 065
  4. SEROQUEL [Suspect]
     Indication: PRODUCT USED FOR UNKNOWN INDICATION
     Route: 065
     Dates: end: 201302
  5. ELAVIL [Suspect]
     Indication: PRODUCT USED FOR UNKNOWN INDICATION
     Route: 065
     Dates: end: 2012
  6. LASIX [Suspect]
     Indication: PRODUCT USED FOR UNKNOWN INDICATION
     Route: 065

REACTIONS (4)
  - Status epilepticus [Unknown]
  - Somnolence [Recovered/Resolved]
  - Treatment noncompliance [Unknown]
  - Anxiety [Unknown]
